FAERS Safety Report 10017086 (Version 2)
Quarter: 2014Q1

REPORT INFORMATION
  Report Type: Spontaneous
  Country: US (occurrence: US)
  Receive Date: 20140318
  Receipt Date: 20140326
  Transmission Date: 20141002
  Serious: Yes (Hospitalization)
  Sender: FDA-Public Use
  Company Number: US-BIOGENIDEC-2014BI023396

PATIENT
  Age: 43 Year
  Sex: Male

DRUGS (9)
  1. TECFIDERA [Suspect]
     Indication: MULTIPLE SCLEROSIS
     Route: 048
  2. CLONAZEPAM [Concomitant]
  3. CYMBALTA [Concomitant]
  4. DIGOXIN [Concomitant]
  5. MENS MULTI VITAMIN AND MINERAL [Concomitant]
  6. RISPERIDONE [Concomitant]
  7. RITALIN [Concomitant]
  8. TIZANIDINE HCI [Concomitant]
  9. TOPAMAX [Concomitant]

REACTIONS (5)
  - Meniscus injury [Not Recovered/Not Resolved]
  - Pain [Not Recovered/Not Resolved]
  - Fatigue [Not Recovered/Not Resolved]
  - Dizziness [Not Recovered/Not Resolved]
  - Local swelling [Unknown]
